FAERS Safety Report 16226445 (Version 1)
Quarter: 2019Q2

REPORT INFORMATION
  Report Type: Spontaneous
  Country: US (occurrence: US)
  Receive Date: 20190423
  Receipt Date: 20190423
  Transmission Date: 20190711
  Serious: Yes (Other)
  Sender: FDA-Public Use
  Company Number: US-CONCORDIA PHARMACEUTICALS INC.-GSH201904-001225

PATIENT
  Sex: Male

DRUGS (6)
  1. XELJANZ [Suspect]
     Active Substance: TOFACITINIB CITRATE
     Indication: PRODUCT USED FOR UNKNOWN INDICATION
     Dosage: INCREASED TO 5 MG TWICE DAILY
     Route: 065
     Dates: start: 201607, end: 201611
  2. ENBREL [Suspect]
     Active Substance: ETANERCEPT
     Indication: PRODUCT USED FOR UNKNOWN INDICATION
  3. PLAQUENIL [Suspect]
     Active Substance: HYDROXYCHLOROQUINE SULFATE
     Indication: PRODUCT USED FOR UNKNOWN INDICATION
  4. XELJANZ [Suspect]
     Active Substance: TOFACITINIB CITRATE
     Dosage: INCREASED TO 5 MG TWICE DAILY
     Route: 065
     Dates: start: 201611, end: 201710
  5. MTX [Suspect]
     Active Substance: METHOTREXATE SODIUM
     Indication: PRODUCT USED FOR UNKNOWN INDICATION
     Dosage: 15 MG PER WEEK  AS OF NOV/2016
     Route: 065
     Dates: end: 201611
  6. MTX [Suspect]
     Active Substance: METHOTREXATE SODIUM
     Route: 065
     Dates: start: 201611, end: 201710

REACTIONS (5)
  - Joint swelling [Unknown]
  - Arthralgia [Unknown]
  - Drug hypersensitivity [Unknown]
  - Hypoaesthesia [Unknown]
  - Pneumonia [Unknown]

NARRATIVE: CASE EVENT DATE: 201710
